FAERS Safety Report 13461950 (Version 1)
Quarter: 2017Q2

REPORT INFORMATION
  Report Type: Spontaneous
  Country: US (occurrence: US)
  Receive Date: 20170420
  Receipt Date: 20170420
  Transmission Date: 20170830
  Serious: Yes (Hospitalization)
  Sender: FDA-Public Use
  Company Number: None

PATIENT
  Age: 52 Year
  Sex: Male
  Weight: 134.9 kg

DRUGS (1)
  1. MEMANTINE HYDROCHLORIDE. [Suspect]
     Active Substance: MEMANTINE HYDROCHLORIDE
     Dates: end: 20170412

REACTIONS (7)
  - Chills [None]
  - Chest pain [None]
  - Somnolence [None]
  - Hypotension [None]
  - Back pain [None]
  - Infusion related reaction [None]
  - Pallor [None]

NARRATIVE: CASE EVENT DATE: 20170405
